FAERS Safety Report 9730840 (Version 2)
Quarter: 2013Q4

REPORT INFORMATION
  Report Type: Spontaneous
  Country: US (occurrence: US)
  Receive Date: 20131203
  Receipt Date: 20131212
  Transmission Date: 20140711
  Serious: Yes (Death, Hospitalization)
  Sender: FDA-Public Use
  Company Number: US-009507513-1311USA011628

PATIENT
  Age: 38 Year
  Sex: Male

DRUGS (3)
  1. TEMODAR [Suspect]
     Indication: NEOPLASM MALIGNANT
     Dosage: 400 MG/ONE WEEK A MONTH FOR 5 DAYS
     Route: 048
     Dates: start: 201307, end: 20131120
  2. DECADRON TABLETS [Concomitant]
  3. LASIX (FUROSEMIDE SODIUM) [Concomitant]

REACTIONS (4)
  - Death [Fatal]
  - Pulmonary thrombosis [Not Recovered/Not Resolved]
  - Pneumonia [Unknown]
  - Collateral circulation [Unknown]
